FAERS Safety Report 6345752-9 (Version None)
Quarter: 2009Q3

REPORT INFORMATION
  Report Type: 
  Country: None (occurrence: None)
  Receive Date: 20090909
  Receipt Date: 20090902
  Transmission Date: 20100115
  Serious: Yes (Hospitalization)
  Sender: FDA-Public Use
  Company Number: DK-TEVA-208287ISR

PATIENT
  Sex: Male

DRUGS (4)
  1. SIMVASTATIN [Suspect]
     Indication: HYPERCHOLESTEROLAEMIA
     Route: 048
     Dates: start: 20080101, end: 20090813
  2. WARFARIN SODIUM [Interacting]
     Indication: DEEP VEIN THROMBOSIS
     Route: 048
     Dates: start: 20090810, end: 20090813
  3. PHENOXYMETHYLPENICILLIN [Interacting]
     Indication: PNEUMONIA
     Route: 048
     Dates: start: 20090810
  4. METOPROLOL SUCCINATE [Concomitant]
     Route: 048
     Dates: start: 20070101

REACTIONS (2)
  - DRUG INTERACTION [None]
  - INTERNATIONAL NORMALISED RATIO INCREASED [None]
